FAERS Safety Report 18165607 (Version 1)
Quarter: 2020Q3

REPORT INFORMATION
  Report Type: Report from Study
  Country: US (occurrence: US)
  Receive Date: 20200818
  Receipt Date: 20200818
  Transmission Date: 20201103
  Serious: Yes (Other)
  Sender: FDA-Public Use
  Company Number: US-GLAXOSMITHKLINE-US2020GSK157979

PATIENT
  Sex: Male

DRUGS (13)
  1. PEGYLATED INTERFERON ALFA 2B [Concomitant]
     Active Substance: PEGINTERFERON ALFA-2B
     Indication: SCROTAL ULCER
  2. ACYCLOVIR. [Suspect]
     Active Substance: ACYCLOVIR
     Indication: HERPES SIMPLEX
  3. ACYCLOVIR. [Suspect]
     Active Substance: ACYCLOVIR
     Indication: CONJUNCTIVITIS
  4. ACYCLOVIR. [Suspect]
     Active Substance: ACYCLOVIR
     Indication: SCROTAL ULCER
  5. CIDOFOVIR. [Concomitant]
     Active Substance: CIDOFOVIR
     Indication: SCROTAL ULCER
     Dosage: UNK
     Route: 042
  6. CIDOFOVIR. [Concomitant]
     Active Substance: CIDOFOVIR
     Indication: SKIN LESION
     Dosage: UNK
     Route: 061
  7. CIDOFOVIR. [Concomitant]
     Active Substance: CIDOFOVIR
     Indication: ORAL DISORDER
  8. FOSCARNET [Concomitant]
     Active Substance: FOSCARNET
     Indication: SKIN LESION
     Dosage: UNK
  9. FOSCARNET [Concomitant]
     Active Substance: FOSCARNET
     Indication: EYE DISORDER
  10. ACYCLOVIR. [Suspect]
     Active Substance: ACYCLOVIR
     Indication: ORAL DISORDER
  11. ACYCLOVIR. [Suspect]
     Active Substance: ACYCLOVIR
     Indication: SKIN LESION
     Dosage: UNK
     Route: 048
  12. FOSCARNET [Concomitant]
     Active Substance: FOSCARNET
     Indication: SCROTAL ULCER
  13. PEGYLATED INTERFERON ALFA 2B [Concomitant]
     Active Substance: PEGINTERFERON ALFA-2B
     Indication: EYE DISORDER
     Dosage: UNK

REACTIONS (5)
  - Condition aggravated [Unknown]
  - Drug resistance [Unknown]
  - Pathogen resistance [Unknown]
  - Application site haemorrhage [Unknown]
  - Drug ineffective [Unknown]
